FAERS Safety Report 10242492 (Version 1)
Quarter: 2014Q2

REPORT INFORMATION
  Report Type: Report from Study
  Country: US (occurrence: US)
  Receive Date: 20140617
  Receipt Date: 20140617
  Transmission Date: 20141212
  Serious: Yes (Hospitalization)
  Sender: FDA-Public Use
  Company Number: US-ABBVIE-14P-163-1246151-00

PATIENT
  Age: 49 Year
  Sex: Female
  Weight: 83.99 kg

DRUGS (21)
  1. HUMIRA [Suspect]
     Indication: PSORIASIS
     Dates: start: 2013, end: 2013
  2. HUMIRA [Suspect]
     Dates: start: 2013
  3. TRIAMCINOLONE [Concomitant]
     Indication: PSORIASIS
  4. OMEPRAZOLE [Concomitant]
     Indication: GASTROOESOPHAGEAL REFLUX DISEASE
  5. ONDASETRON [Concomitant]
     Indication: NAUSEA
  6. LEVOTHYROXINE [Concomitant]
     Indication: HYPOTHYROIDISM
  7. KLONOPIN [Concomitant]
     Indication: ANXIOLYTIC THERAPY
  8. CLONAZEPAM [Concomitant]
     Indication: ANXIETY
  9. LITHIUM [Concomitant]
     Indication: AFFECTIVE DISORDER
  10. PROVENTIL [Concomitant]
     Indication: ASTHMA
  11. RETIN A [Concomitant]
     Indication: ACNE
  12. ACZONE [Concomitant]
     Indication: ACNE
  13. TROKENDI [Concomitant]
     Indication: MIGRAINE
  14. PHENERGAN [Concomitant]
     Indication: NAUSEA
  15. TRAZODONE [Concomitant]
     Indication: MIGRAINE
  16. CLOBEX [Concomitant]
     Indication: PSORIASIS
  17. NUVIGIL [Concomitant]
     Indication: SOMNOLENCE
  18. INDOMETHACIN [Concomitant]
     Indication: MIGRAINE
  19. MELATONIN [Concomitant]
     Indication: INSOMNIA
  20. BRINTELLIX [Concomitant]
     Indication: DEPRESSION
  21. EPINEPHRINE [Concomitant]
     Indication: HYPERSENSITIVITY
     Dosage: PEN

REACTIONS (12)
  - Megacolon [Recovered/Resolved]
  - Vomiting [Recovered/Resolved]
  - Diarrhoea [Recovered/Resolved]
  - Nausea [Recovered/Resolved]
  - Head injury [Recovered/Resolved]
  - Fall [Recovered/Resolved]
  - White blood cell count increased [Recovered/Resolved]
  - Urinary tract infection [Recovered/Resolved]
  - Spleen disorder [Not Recovered/Not Resolved]
  - Intestinal mucosal hypertrophy [Not Recovered/Not Resolved]
  - Asthenia [Recovered/Resolved]
  - Colitis [Not Recovered/Not Resolved]
